FAERS Safety Report 5092083-3 (Version None)
Quarter: 2006Q3

REPORT INFORMATION
  Report Type: 
  Country: None (occurrence: None)
  Receive Date: 20060825
  Receipt Date: 20060814
  Transmission Date: 20061208
  Serious: Yes (Other)
  Sender: FDA-Public Use
  Company Number: GXKR2006JP04744

PATIENT
  Age: 69 Year
  Sex: Male

DRUGS (1)
  1. AMIODARONE HCL [Suspect]
     Indication: ARRHYTHMOGENIC RIGHT VENTRICULAR DYSPLASIA
     Dates: start: 19930801

REACTIONS (8)
  - ANTI-THYROID ANTIBODY [None]
  - AUTOIMMUNE DISORDER [None]
  - BLOOD IMMUNOGLOBULIN A INCREASED [None]
  - BLOOD IMMUNOGLOBULIN G DECREASED [None]
  - HYPERTHYROIDISM [None]
  - HYPOTHYROIDISM [None]
  - MULTIPLE MYELOMA [None]
  - NORMOCHROMIC NORMOCYTIC ANAEMIA [None]
